FAERS Safety Report 4704502-X (Version None)
Quarter: 2005Q2

REPORT INFORMATION
  Report Type: 
  Country: None (occurrence: None)
  Receive Date: 20050628
  Receipt Date: 20050609
  Transmission Date: 20051028
  Serious: Yes (Other)
  Sender: FDA-Public Use
  Company Number: DE_050616121

PATIENT
  Age: 78 Year
  Sex: Male

DRUGS (4)
  1. YENTREVE (DULOXETINE HYDROCHLORIDE [Suspect]
     Indication: STRESS INCONTINENCE
     Dosage: 40 MG/2 DAY
     Dates: start: 20041101, end: 20041201
  2. VERAPAMIL [Concomitant]
  3. NITRENDIPIN (NITRENDIPINE) [Concomitant]
  4. ACETYLSALICYLIC ACID SRT [Concomitant]

REACTIONS (2)
  - BLOOD PRESSURE INCREASED [None]
  - CONSTIPATION [None]
